FAERS Safety Report 10730254 (Version 1)
Quarter: 2015Q1

REPORT INFORMATION
  Report Type: Spontaneous
  Country: JP (occurrence: JP)
  Receive Date: 20150122
  Receipt Date: 20150122
  Transmission Date: 20150721
  Serious: Yes (Other)
  Sender: FDA-Public Use
  Company Number: ALCN2008JP002602

PATIENT
  Age: 76 Year
  Sex: Female
  Weight: 51.8 kg

DRUGS (4)
  1. VEGAMOX [Suspect]
     Active Substance: MOXIFLOXACIN HYDROCHLORIDE
     Indication: PROPHYLAXIS
     Dosage: 1 GTT, QID
     Route: 047
     Dates: start: 20080906, end: 20080906
  2. RIZABEN [Concomitant]
     Active Substance: TRANILAST
     Indication: HYPERSENSITIVITY
     Dosage: 1 DF, QID
     Route: 047
     Dates: start: 20080716
  3. HYALEIN [Concomitant]
     Active Substance: HYALURONATE SODIUM
     Indication: DRY EYE
     Dosage: 1 DF, QID
     Route: 047
     Dates: start: 20080716
  4. XALATAN [Concomitant]
     Active Substance: LATANOPROST
     Indication: GLAUCOMA
     Dosage: 1 DF, QD
     Route: 047
     Dates: start: 20080716

REACTIONS (1)
  - Anaphylactic shock [Recovering/Resolving]

NARRATIVE: CASE EVENT DATE: 20080906
